FAERS Safety Report 4535478-6 (Version None)
Quarter: 2004Q4

REPORT INFORMATION
  Report Type: 
  Country: None (occurrence: None)
  Receive Date: 20041222
  Receipt Date: 20041203
  Transmission Date: 20050328
  Serious: Yes (Hospitalization)
  Sender: FDA-Public Use
  Company Number: NLWYE257403DEC04

PATIENT
  Sex: Female

DRUGS (1)
  1. ENBREL [Suspect]
     Indication: PSORIATIC ARTHROPATHY
     Dosage: UNKNOWN
     Dates: start: 20040801

REACTIONS (5)
  - ARTHROPATHY [None]
  - LIVER DISORDER [None]
  - LYMPHOMA [None]
  - NEOPLASM MALIGNANT [None]
  - NON-HODGKIN'S LYMPHOMA [None]
